FAERS Safety Report 5224697-1 (Version None)
Quarter: 2007Q1

REPORT INFORMATION
  Report Type: 
  Country: None (occurrence: None)
  Receive Date: 20070129
  Receipt Date: 20070129
  Transmission Date: 20070707
  Serious: Yes (Hospitalization, Disabling)
  Sender: FDA-Public Use
  Company Number: None

PATIENT
  Age: 79 Year
  Sex: Male
  Weight: 76 kg

DRUGS (3)
  1. RAPTIVA [Suspect]
     Indication: PSORIASIS
     Dosage: SEE IMAGE
     Route: 058
     Dates: start: 20061220
  2. RAPTIVA [Suspect]
     Indication: PSORIASIS
     Dosage: SEE IMAGE
     Route: 058
     Dates: start: 20061227
  3. RAPTIVA [Suspect]
     Indication: PSORIASIS
     Dosage: SEE IMAGE
     Route: 058
     Dates: start: 20070103

REACTIONS (4)
  - ABASIA [None]
  - ASTHENIA [None]
  - HYPOAESTHESIA [None]
  - RASH GENERALISED [None]
